FAERS Safety Report 20360145 (Version 1)
Quarter: 2022Q1

REPORT INFORMATION
  Report Type: Spontaneous
  Country: US (occurrence: US)
  Receive Date: 20220121
  Receipt Date: 20220121
  Transmission Date: 20220423
  Serious: No
  Sender: FDA-Public Use
  Company Number: US-AUROBINDO-AUR-APL-2021-006778

PATIENT
  Sex: Male
  Weight: 61.22 kg

DRUGS (3)
  1. CLOZAPINE [Suspect]
     Active Substance: CLOZAPINE
     Indication: Schizoaffective disorder
     Dosage: 100 MG IN THE MORNING AND 250 MG IN EVENING
     Route: 048
     Dates: start: 2019
  2. HALDOL [Concomitant]
     Active Substance: HALOPERIDOL
     Indication: Product used for unknown indication
     Dosage: 10 MILLIGRAM, AT BED TIME
     Route: 065
  3. LITHIUM [Concomitant]
     Active Substance: LITHIUM
     Indication: Product used for unknown indication
     Dosage: 900 MILLIGRAM, AT BED TIME
     Route: 065

REACTIONS (2)
  - Drooling [Recovered/Resolved]
  - Imprisonment [Unknown]
